FAERS Safety Report 18390868 (Version 1)
Quarter: 2020Q4

REPORT INFORMATION
  Report Type: Report from Study
  Country: KR (occurrence: KR)
  Receive Date: 20201016
  Receipt Date: 20201016
  Transmission Date: 20210114
  Serious: Yes (Hospitalization, Other)
  Sender: FDA-Public Use
  Company Number: KR-TEVA-2020-KR-1840163

PATIENT
  Age: 42 Year
  Sex: Female

DRUGS (15)
  1. CARBOPLATIN. [Suspect]
     Active Substance: CARBOPLATIN
     Indication: TRIPLE NEGATIVE BREAST CANCER
     Dosage: DAY 1 OF FOUR 21-DAY CYCLES IN SEGMENT 1
     Route: 042
     Dates: start: 20150917, end: 20150917
  2. DOXORUBICIN [Suspect]
     Active Substance: DOXORUBICIN
     Dosage: DAY 1 OF FOUR 21-DAY CYCLES IN SEGMENT 2 (45 MG/M2)
     Route: 042
     Dates: start: 20160212
  3. CARBOPLATIN. [Suspect]
     Active Substance: CARBOPLATIN
     Dosage: DAY 1 OF FOUR 21-DAY CYCLES IN SEGMENT 1
     Route: 042
     Dates: start: 20151126, end: 20151231
  4. CYCLOPHOSPHAMIDE. [Suspect]
     Active Substance: CYCLOPHOSPHAMIDE
     Indication: TRIPLE NEGATIVE BREAST CANCER
     Dosage: DAY 1 OF FOUR 21-DAY CYCLES IN SEGMENT 2 (600 MG/M2)
     Route: 042
     Dates: start: 20160122, end: 20160122
  5. DOXORUBICIN [Suspect]
     Active Substance: DOXORUBICIN
     Indication: TRIPLE NEGATIVE BREAST CANCER
     Dosage: DAY 1 OF FOUR 21-DAY CYCLES IN SEGMENT 2 (60 MG/M2)
     Route: 042
     Dates: start: 20160122, end: 20160122
  6. FILGRASTIM [Concomitant]
     Active Substance: FILGRASTIM
     Indication: NEUTROPHIL COUNT DECREASED
     Dosage: WITH CHEMO (300 MCG)
     Route: 058
     Dates: start: 20151020
  7. GOSERELIN [Concomitant]
     Active Substance: GOSERELIN
     Indication: PROPHYLAXIS
     Dosage: (3.6 MG,1 IN 1 M)
     Route: 058
     Dates: start: 20150914
  8. PACLITAXEL. [Suspect]
     Active Substance: PACLITAXEL
     Indication: TRIPLE NEGATIVE BREAST CANCER
     Dosage: DAY 1 OF 12 WEEKLY CYCLES IN SEGMENT 1 (80 MG/M2)
     Route: 042
     Dates: start: 20150917, end: 20151002
  9. PACLITAXEL. [Suspect]
     Active Substance: PACLITAXEL
     Dosage: DAY 1 OF 12 WEEKLY CYCLES IN SEGMENT 1 (70 MG/M2)
     Route: 042
     Dates: start: 20151022, end: 20151029
  10. PACLITAXEL. [Suspect]
     Active Substance: PACLITAXEL
     Dosage: DAY 1 OF 12 WEEKLY CYCLES IN SEGMENT 1 (70 MG/M2)
     Route: 042
     Dates: start: 20151119, end: 20151231
  11. FILGRASTIM [Concomitant]
     Active Substance: FILGRASTIM
     Dosage: 300 MCG (300 MCG,1 IN 1 D)
     Route: 058
     Dates: start: 20151118, end: 20151118
  12. FILGRASTIM [Concomitant]
     Active Substance: FILGRASTIM
     Dosage: 300 MCG (300 MCG,1  IN 1 D)
     Route: 058
     Dates: start: 20151127, end: 20151127
  13. CARBOPLATIN. [Suspect]
     Active Substance: CARBOPLATIN
     Dosage: DAY 1 OF FOUR 21-DAY CYCLES IN SEGMENT 1
     Route: 042
     Dates: start: 20151022, end: 20151022
  14. ABT-888 [Suspect]
     Active Substance: VELIPARIB
     Indication: TRIPLE NEGATIVE BREAST CANCER
     Dosage: (2 IN 1 D)
     Route: 048
     Dates: start: 20150917, end: 20160106
  15. CYCLOPHOSPHAMIDE. [Suspect]
     Active Substance: CYCLOPHOSPHAMIDE
     Dosage: DAY 1 OF FOUR 21-DAY CYCLES IN SEGMENT 2 (450 MG/M2)
     Route: 042
     Dates: start: 20160212

REACTIONS (1)
  - Febrile neutropenia [Recovered/Resolved]

NARRATIVE: CASE EVENT DATE: 20160201
